FAERS Safety Report 8388269-2 (Version None)
Quarter: 2012Q2

REPORT INFORMATION
  Report Type: 
  Country: None (occurrence: None)
  Receive Date: 20120525
  Receipt Date: 20120517
  Transmission Date: 20120825
  Serious: Yes (Hospitalization)
  Sender: FDA-Public Use
  Company Number: US-VERTEX PHARMACEUTICALS INC.-AE-2012-007313

PATIENT
  Sex: Female
  Weight: 68.1 kg

DRUGS (9)
  1. CYANOCOBALAMIN [Concomitant]
  2. VITAMIN D [Concomitant]
  3. PEGASYS [Concomitant]
     Indication: HEPATITIS C
     Route: 058
     Dates: start: 20111206
  4. RAMIPRIL [Concomitant]
  5. RIBAVIRIN [Concomitant]
     Indication: HEPATITIS C
     Dates: start: 20111206
  6. BENADRYL [Concomitant]
  7. LOVAZA [Concomitant]
  8. TOPROL-XL [Concomitant]
  9. INCIVEK [Suspect]
     Indication: HEPATITIS C
     Route: 048
     Dates: start: 20111206

REACTIONS (4)
  - RASH [None]
  - HAEMORRHAGE [None]
  - WHITE BLOOD CELL COUNT DECREASED [None]
  - DRY SKIN [None]
